FAERS Safety Report 8609111-8 (Version None)
Quarter: 2012Q3

REPORT INFORMATION
  Report Type: 
  Country: None (occurrence: None)
  Receive Date: 20120808
  Receipt Date: 20120723
  Transmission Date: 20120928
  Serious: Yes (Hospitalization, Other)
  Sender: FDA-Public Use
  Company Number: 2012MA008987

PATIENT
  Age: 70 Year
  Sex: Female

DRUGS (2)
  1. CARBAMAZEPINE [Suspect]
     Indication: MOOD SWINGS
     Dosage: 200 MG; QD
  2. VALPROIC ACID [Concomitant]

REACTIONS (5)
  - DELIRIUM [None]
  - INSOMNIA [None]
  - HYPOMANIA [None]
  - AKATHISIA [None]
  - DRUG RASH WITH EOSINOPHILIA AND SYSTEMIC SYMPTOMS [None]
